FAERS Safety Report 16033005 (Version 1)
Quarter: 2019Q1

REPORT INFORMATION
  Report Type: Report from Study
  Country: IT (occurrence: IT)
  Receive Date: 20190305
  Receipt Date: 20190305
  Transmission Date: 20190418
  Serious: Yes (Hospitalization)
  Sender: FDA-Public Use
  Company Number: IT-ACCORD-110506

PATIENT
  Age: 87 Year
  Sex: Male

DRUGS (5)
  1. XARELTO [Suspect]
     Active Substance: RIVAROXABAN
     Indication: PRODUCT USED FOR UNKNOWN INDICATION
     Dosage: STRENGTH: 15 MG
     Route: 048
  2. DELTACORTENE [Concomitant]
     Active Substance: PREDNISONE
     Dosage: STRENGTH: 25 MG
     Route: 048
  3. CLOPIDOGREL [Suspect]
     Active Substance: CLOPIDOGREL BISULFATE
     Indication: PRODUCT USED FOR UNKNOWN INDICATION
     Route: 048
  4. PANTORC [Concomitant]
     Active Substance: PANTOPRAZOLE SODIUM
     Dosage: STRENGTH: 20 MG
     Route: 048
  5. CEDRAVIS [Concomitant]
     Dosage: STRENGTH: 35 MG
     Route: 048

REACTIONS (3)
  - Dyspnoea [Recovered/Resolved]
  - Rectal haemorrhage [Recovered/Resolved]
  - Microcytic anaemia [Recovered/Resolved]

NARRATIVE: CASE EVENT DATE: 20180605
